FAERS Safety Report 6774352-1 (Version None)
Quarter: 2010Q2

REPORT INFORMATION
  Report Type: 
  Country: None (occurrence: None)
  Receive Date: 20100617
  Receipt Date: 20100607
  Transmission Date: 20101027
  Serious: Yes (Hospitalization)
  Sender: FDA-Public Use
  Company Number: IT-JNJFOC-20100604283

PATIENT
  Sex: Male

DRUGS (7)
  1. LOPERAMIDE [Suspect]
     Indication: DIARRHOEA
     Route: 065
  2. SUNITINIB MALATE [Suspect]
     Indication: METASTATIC RENAL CELL CARCINOMA
     Route: 048
  3. VERAPAMIL HYDROCHLORIDE [Concomitant]
     Route: 065
  4. IRON [Concomitant]
     Route: 065
  5. URSODIOL [Concomitant]
     Route: 065
  6. EPOGEN [Concomitant]
     Route: 065
  7. THYROID HORMONES [Concomitant]
     Route: 065

REACTIONS (4)
  - BLOOD LACTATE DEHYDROGENASE INCREASED [None]
  - DISEASE PROGRESSION [None]
  - HYPONATRAEMIA [None]
  - INTESTINAL OBSTRUCTION [None]
